FAERS Safety Report 6828739-9 (Version None)
Quarter: 2010Q3

REPORT INFORMATION
  Report Type: 
  Country: None (occurrence: None)
  Receive Date: 20100709
  Receipt Date: 20070216
  Transmission Date: 20110219
  Serious: No
  Sender: FDA-Public Use
  Company Number: US-PFIZER INC-2007013507

PATIENT
  Sex: Female
  Weight: 58.97 kg

DRUGS (3)
  1. CHANTIX [Suspect]
     Indication: SMOKING CESSATION THERAPY
     Dates: start: 20070101
  2. CORICIDIN D SRT [Concomitant]
     Indication: SINUS HEADACHE
  3. IBUPROFEN [Concomitant]
     Indication: HEADACHE

REACTIONS (2)
  - NAUSEA [None]
  - VOMITING [None]
